FAERS Safety Report 10862013 (Version 1)
Quarter: 2015Q1

REPORT INFORMATION
  Report Type: Spontaneous
  Country: IT (occurrence: IT)
  Receive Date: 20150224
  Receipt Date: 20150224
  Transmission Date: 20150721
  Serious: Yes (Death)
  Sender: FDA-Public Use
  Company Number: PHHY2015IT020144

PATIENT
  Age: 62 Year
  Sex: Male

DRUGS (4)
  1. DEFERASIROX [Suspect]
     Active Substance: DEFERASIROX
     Dosage: 30 MG/KG/ DIE, UNK
     Route: 065
  2. ERYTHROPOIETIN ALPHA [Suspect]
     Active Substance: ERYTHROPOIETIN
     Indication: MYELODYSPLASTIC SYNDROME
     Route: 065
  3. DEFEROXAMINE [Suspect]
     Active Substance: DEFEROXAMINE\DEFEROXAMINE MESYLATE
     Dosage: 2 G, QD FOR 5 DAYS/WEEK
     Route: 058
  4. DEFERASIROX [Suspect]
     Active Substance: DEFERASIROX
     Indication: MYELODYSPLASTIC SYNDROME
     Dosage: 10 MG/KG/ DIE, UNK
     Route: 065

REACTIONS (5)
  - Serum ferritin increased [Unknown]
  - Septic shock [Fatal]
  - Off label use [Unknown]
  - Haemoglobin decreased [Unknown]
  - Drug ineffective [Unknown]
